FAERS Safety Report 25746183 (Version 3)
Quarter: 2025Q4

REPORT INFORMATION
  Report Type: Spontaneous
  Country: US (occurrence: US)
  Receive Date: 20250901
  Receipt Date: 20251125
  Transmission Date: 20260117
  Serious: Yes (Life-Threatening, Hospitalization, Other)
  Sender: TEVA
  Company Number: US-TEVA-VS-3368065

PATIENT
  Age: 22 Year
  Sex: Female

DRUGS (4)
  1. ACTIQ [Suspect]
     Active Substance: FENTANYL CITRATE
     Indication: Back pain
     Route: 065
     Dates: start: 20020907, end: 2011
  2. ADDERALL [Concomitant]
     Active Substance: AMPHETAMINE ASPARTATE\AMPHETAMINE SULFATE\DEXTROAMPHETAMINE SACCHARATE\DEXTROAMPHETAMINE SULFATE
     Indication: Product used for unknown indication
  3. ADDERALL [Concomitant]
     Active Substance: AMPHETAMINE ASPARTATE\AMPHETAMINE SULFATE\DEXTROAMPHETAMINE SACCHARATE\DEXTROAMPHETAMINE SULFATE
     Indication: Product used for unknown indication
  4. HERBALS\MITRAGYNINE [Concomitant]
     Active Substance: HERBALS\MITRAGYNINE
     Indication: Product used for unknown indication
     Dosage: STOOPED 10 YEARS AGO, ONE SPOON A DAY

REACTIONS (15)
  - Drug dependence [Unknown]
  - Off label use [Unknown]
  - Tooth injury [Unknown]
  - Depression [Unknown]
  - General physical health deterioration [Unknown]
  - Socioeconomic precarity [Unknown]
  - Impaired quality of life [Unknown]
  - Emotional distress [Not Recovered/Not Resolved]
  - Tooth loss [Unknown]
  - Nightmare [Unknown]
  - Tooth fracture [Unknown]
  - Overdose [Unknown]
  - Dry mouth [Unknown]
  - Tooth erosion [Unknown]
  - Respiratory depression [Unknown]

NARRATIVE: CASE EVENT DATE: 20010101
